FAERS Safety Report 5219766-6 (Version None)
Quarter: 2007Q1

REPORT INFORMATION
  Report Type: 
  Country: None (occurrence: None)
  Receive Date: 20070125
  Receipt Date: 20070116
  Transmission Date: 20070707
  Serious: Yes (Other)
  Sender: FDA-Public Use
  Company Number: US-PFIZER INC-2007004329

PATIENT
  Sex: Female

DRUGS (1)
  1. ESTRING [Suspect]
     Route: 067

REACTIONS (1)
  - PAIN [None]
